FAERS Safety Report 18289464 (Version 1)
Quarter: 2020Q3

REPORT INFORMATION
  Report Type: Spontaneous
  Country: US (occurrence: US)
  Receive Date: 20200921
  Receipt Date: 20200921
  Transmission Date: 20201103
  Serious: Yes (Hospitalization, Disabling)
  Sender: FDA-Public Use
  Company Number: None

PATIENT
  Age: 10 Year
  Sex: Male
  Weight: 60.75 kg

DRUGS (6)
  1. VIT D [Concomitant]
     Active Substance: VITAMIN D NOS
  2. KEPPRA [Concomitant]
     Active Substance: LEVETIRACETAM
  3. MULI VIT [Concomitant]
  4. ETHOSUXIMIDE. [Concomitant]
     Active Substance: ETHOSUXIMIDE
  5. ETHOSUXIMIDE. [Suspect]
     Active Substance: ETHOSUXIMIDE
     Indication: PETIT MAL EPILEPSY
     Dates: start: 20200818, end: 20200914
  6. DEPAKOTE [Concomitant]
     Active Substance: DIVALPROEX SODIUM

REACTIONS (7)
  - Vomiting [None]
  - Petit mal epilepsy [None]
  - Product substitution issue [None]
  - Decreased appetite [None]
  - Diarrhoea [None]
  - Abdominal pain upper [None]
  - Tonic convulsion [None]

NARRATIVE: CASE EVENT DATE: 20200818
